FAERS Safety Report 5312559-0 (Version None)
Quarter: 2007Q2

REPORT INFORMATION
  Report Type: 
  Country: None (occurrence: None)
  Receive Date: 20070430
  Receipt Date: 20070108
  Transmission Date: 20071010
  Serious: No
  Sender: FDA-Public Use
  Company Number: 2007UW00357

PATIENT
  Age: 77 Year
  Sex: Female
  Weight: 63.5 kg

DRUGS (4)
  1. NEXIUM [Suspect]
     Indication: INFLAMMATION
     Route: 048
     Dates: start: 20060101
  2. PRILOSEC [Concomitant]
     Route: 048
  3. CRESTOR [Concomitant]
     Route: 048
  4. DICLOPHENAC [Concomitant]

REACTIONS (3)
  - CHEST PAIN [None]
  - DYSGEUSIA [None]
  - TONGUE BLACK HAIRY [None]
